FAERS Safety Report 17128357 (Version 1)
Quarter: 2019Q4

REPORT INFORMATION
  Report Type: Spontaneous
  Country: US (occurrence: US)
  Receive Date: 20191206
  Receipt Date: 20191206
  Transmission Date: 20200122
  Serious: Yes (Other)
  Sender: FDA-Public Use
  Company Number: None

PATIENT
  Age: 84 Year
  Sex: Female
  Weight: 81.9 kg

DRUGS (2)
  1. RECLAST [Suspect]
     Active Substance: ZOLEDRONIC ACID
     Route: 042
  2. RECLAST [Concomitant]
     Active Substance: ZOLEDRONIC ACID
     Dates: start: 20191122

REACTIONS (3)
  - Pain in extremity [None]
  - Influenza like illness [None]
  - Gait disturbance [None]

NARRATIVE: CASE EVENT DATE: 20191122
